FAERS Safety Report 19024519 (Version 1)
Quarter: 2021Q1

REPORT INFORMATION
  Report Type: Spontaneous
  Country: KG (occurrence: KG)
  Receive Date: 20210317
  Receipt Date: 20210317
  Transmission Date: 20210420
  Serious: No
  Sender: FDA-Public Use
  Company Number: KG-LUPIN PHARMACEUTICALS INC.-2021-03132

PATIENT
  Age: 31 Year
  Sex: Female

DRUGS (6)
  1. SALINE [SODIUM CHLORIDE] [Suspect]
     Active Substance: SODIUM CHLORIDE
     Indication: SYMPTOMATIC TREATMENT
     Dosage: 6 LITER?? EVERY FOUR HOURS
     Route: 065
  2. BUPIVACAINE. [Suspect]
     Active Substance: BUPIVACAINE
     Indication: EPIDURAL ANAESTHESIA
     Dosage: 10 MILLIGRAM, SINGLE?BUPIVACAINE ONE?SHOT (SINGLE ADMINISTRATION)
     Route: 008
  3. UMIFENOVIR. [Suspect]
     Active Substance: UMIFENOVIR
     Indication: COVID-19
     Dosage: 400 MILLIGRAM, BID
     Route: 065
  4. ACETAMINOPHEN. [Suspect]
     Active Substance: ACETAMINOPHEN
     Indication: SYMPTOMATIC TREATMENT
     Dosage: 650 MILLIGRAM
     Route: 065
  5. MORPHINE [Suspect]
     Active Substance: MORPHINE
     Indication: EPIDURAL ANAESTHESIA
     Dosage: 100 MICROGRAM, SINGLE?MORPHINE ONE?SHOT (SINGLE ADMINISTRATION)
     Route: 008
  6. FENTANYL. [Suspect]
     Active Substance: FENTANYL
     Indication: EPIDURAL ANAESTHESIA
     Dosage: 25 MICROGRAM, SINGLE?FENTANYL ONE?SHOT (SINGLE ADMINISTRATION)
     Route: 008

REACTIONS (2)
  - Maternal exposure during pregnancy [Unknown]
  - Normal newborn [Unknown]
